FAERS Safety Report 21356294 (Version 1)
Quarter: 2022Q3

REPORT INFORMATION
  Report Type: Spontaneous
  Country: CN (occurrence: CN)
  Receive Date: 20220920
  Receipt Date: 20220920
  Transmission Date: 20221027
  Serious: Yes (Other)
  Sender: FDA-Public Use
  Company Number: CN-PFIZER INC-PV202200064754

PATIENT
  Age: 24 Year
  Sex: Male
  Weight: 50 kg

DRUGS (1)
  1. METHOTREXATE SODIUM [Suspect]
     Active Substance: METHOTREXATE SODIUM
     Indication: Neoplasm
     Dosage: 3 G, 1X/DAY
     Route: 041
     Dates: start: 20220710, end: 20220710

REACTIONS (1)
  - Multiple organ dysfunction syndrome [Recovered/Resolved with Sequelae]

NARRATIVE: CASE EVENT DATE: 20220710
